FAERS Safety Report 6612027-X (Version None)
Quarter: 2010Q1

REPORT INFORMATION
  Report Type: 
  Country: None (occurrence: None)
  Receive Date: 20100303
  Receipt Date: 20100223
  Transmission Date: 20100710
  Serious: Yes (Hospitalization)
  Sender: FDA-Public Use
  Company Number: A0845955A

PATIENT
  Age: 82 Year
  Sex: Female

DRUGS (10)
  1. AVANDIA [Suspect]
     Dosage: 8TAB PER DAY
     Route: 048
     Dates: start: 20050101
  2. ALPRAZOLAM [Concomitant]
  3. ACIPHEX [Concomitant]
  4. DORIDONE [Concomitant]
  5. QUINAPRIL [Concomitant]
  6. GLYBURIDE [Concomitant]
  7. LEVOXYL [Concomitant]
  8. METOPROLOL TARTRATE [Concomitant]
  9. BABY ASPIRIN [Concomitant]
  10. SINEMET [Concomitant]

REACTIONS (7)
  - CHEST PAIN [None]
  - CONFUSIONAL STATE [None]
  - CORONARY ARTERIAL STENT INSERTION [None]
  - DISORIENTATION [None]
  - DRY MOUTH [None]
  - DYSPNOEA [None]
  - ILL-DEFINED DISORDER [None]
